FAERS Safety Report 6712398-X (Version None)
Quarter: 2010Q2

REPORT INFORMATION
  Report Type: 
  Country: None (occurrence: None)
  Receive Date: 20100505
  Receipt Date: 20100421
  Transmission Date: 20101027
  Serious: Yes (Hospitalization)
  Sender: FDA-Public Use
  Company Number: JP-AMGEN-QUU406373

PATIENT
  Age: 56 Year
  Sex: Male

DRUGS (1)
  1. SENSIPAR [Suspect]
     Indication: HYPERPARATHYROIDISM SECONDARY
     Route: 048
     Dates: start: 20100304, end: 20100310

REACTIONS (4)
  - ABDOMINAL PAIN LOWER [None]
  - ANAEMIA [None]
  - EOSINOPHIL COUNT INCREASED [None]
  - RENAL HAEMORRHAGE [None]
